FAERS Safety Report 17497175 (Version 1)
Quarter: 2020Q1

REPORT INFORMATION
  Report Type: Spontaneous
  Country: US (occurrence: US)
  Receive Date: 20200304
  Receipt Date: 20200304
  Transmission Date: 20200409
  Serious: No
  Sender: FDA-Public Use
  Company Number: US-PIERREL PHARMA S.P.A.-2019PIR00028

PATIENT
  Age: 9 Year
  Sex: Male
  Weight: 45.35 kg

DRUGS (2)
  1. MEPIVACAINE 1:20,000 [Concomitant]
     Dosage: UNK
     Dates: start: 20190529, end: 20190529
  2. ORABLOC [Suspect]
     Active Substance: ARTICAINE HYDROCHLORIDE\EPINEPHRINE BITARTRATE
     Indication: LOCAL ANAESTHESIA
     Dosage: 4 DOSAGE UNITS, ONCE
     Dates: start: 20190529, end: 20190529

REACTIONS (1)
  - Therapeutic product effect incomplete [Recovered/Resolved]

NARRATIVE: CASE EVENT DATE: 20190529
